FAERS Safety Report 16376245 (Version 2)
Quarter: 2020Q3

REPORT INFORMATION
  Report Type: Other
  Country: DE (occurrence: DE)
  Receive Date: 20190531
  Receipt Date: 20200827
  Transmission Date: 20201102
  Serious: No
  Sender: FDA-Public Use
  Company Number: DE-ROCHE-2329355

PATIENT
  Age: 56 Year
  Sex: Male
  Weight: 120 kg

DRUGS (9)
  1. OCRELIZUMAB. [Suspect]
     Active Substance: OCRELIZUMAB
     Indication: MULTIPLE SCLEROSIS
     Route: 042
     Dates: start: 20180913, end: 20180928
  2. RAMILICH [Concomitant]
     Active Substance: RAMIPRIL
     Indication: HYPERTENSION
     Dosage: ONGOING
     Route: 048
  3. DEKRISTOL [Concomitant]
     Active Substance: CHOLECALCIFEROL
     Indication: VITAMIN D DEFICIENCY
     Route: 048
  4. PREDNISOLUT [Concomitant]
     Active Substance: PREDNISOLONE
     Route: 042
  5. TAMSULOSIN [Concomitant]
     Active Substance: TAMSULOSIN
     Indication: BENIGN PROSTATIC HYPERPLASIA
     Dosage: ONGOING
     Route: 048
  6. RANITIDINE. [Concomitant]
     Active Substance: RANITIDINE
     Dosage: SIDE EFFECT PROPHYLAXIS FOR OCREVUS ADMINISTRATION
     Route: 048
  7. FAMPYRA [Concomitant]
     Active Substance: DALFAMPRIDINE
     Dosage: IMPROVEMENT OF AMBULATORY ABILITY
     Route: 048
  8. PREDNISOLUT [Concomitant]
     Active Substance: PREDNISOLONE
     Dosage: SIDE EFFECT PROPHYLAXIS FOR OCREVUS ADMINISTRATION
     Route: 048
  9. AERIUS [Concomitant]
     Dosage: SIDE EFFECT PROPHYLAXIS FOR OCREVUS ADMINISTRATION
     Route: 048

REACTIONS (1)
  - Pulpitis dental [Recovered/Resolved]

NARRATIVE: CASE EVENT DATE: 20190314
